FAERS Safety Report 19841512 (Version 1)
Quarter: 2021Q3

REPORT INFORMATION
  Report Type: Spontaneous
  Country: PL (occurrence: PL)
  Receive Date: 20210916
  Receipt Date: 20210916
  Transmission Date: 20211014
  Serious: Yes (Life-Threatening)
  Sender: FDA-Public Use
  Company Number: PL-TEVA-2021-PL-1951457

PATIENT
  Age: 88 Year
  Sex: Female
  Weight: 50 kg

DRUGS (1)
  1. RISPERIDONE. [Suspect]
     Active Substance: RISPERIDONE
     Dosage: 1 MG
     Route: 048
     Dates: start: 20210122, end: 20210122

REACTIONS (4)
  - Somnolence [Unknown]
  - Suicide attempt [Unknown]
  - Toxicity to various agents [Unknown]
  - Confusional state [Unknown]

NARRATIVE: CASE EVENT DATE: 20210122
